FAERS Safety Report 9177003 (Version 1)
Quarter: 2013Q1

REPORT INFORMATION
  Report Type: Spontaneous
  Country: US (occurrence: None)
  Receive Date: 20130320
  Receipt Date: 20130320
  Transmission Date: 20140127
  Serious: Yes (Other)
  Sender: FDA-Public Use
  Company Number: None

PATIENT
  Sex: Male

DRUGS (1)
  1. CIPROFLOXACIN 500MG [Suspect]

REACTIONS (5)
  - Tendon disorder [None]
  - Ligament disorder [None]
  - Discomfort [None]
  - Muscle spasms [None]
  - Ligament injury [None]
